FAERS Safety Report 10408800 (Version 1)
Quarter: 2014Q1

REPORT INFORMATION
  Report Type: Spontaneous
  Country: US (occurrence: None)
  Receive Date: 20130418
  Receipt Date: 20130418
  Transmission Date: 20141002
  Serious: Yes (Other)
  Sender: FDA-Public Use
  Company Number: 00110207M

PATIENT
  Age: 45 Year
  Sex: Female

DRUGS (6)
  1. SINGULAIR [Suspect]
     Route: 048
  2. FLOVENT (FLUTICASONE PROPIONATE) [Concomitant]
  3. THERAPY UNSPECIFIED [Concomitant]
  4. ESTROGEN [Concomitant]
  5. PROVERA (MEDROXYPROGESTERONE ACETATE) [Concomitant]
  6. MOTRIN (IBUPROFEN) [Concomitant]

REACTIONS (1)
  - Muscle spasms [None]
